FAERS Safety Report 20227428 (Version 2)
Quarter: 2022Q1

REPORT INFORMATION
  Report Type: Spontaneous
  Country: CA (occurrence: CA)
  Receive Date: 20211224
  Receipt Date: 20220201
  Transmission Date: 20220423
  Serious: No
  Sender: FDA-Public Use
  Company Number: CA-SA-SAC20211222001177

PATIENT
  Age: 97 Year
  Sex: Female

DRUGS (32)
  1. LEFLUNOMIDE [Suspect]
     Active Substance: LEFLUNOMIDE
     Indication: Product used for unknown indication
  2. PLAQUENIL [Suspect]
     Active Substance: HYDROXYCHLOROQUINE SULFATE
  3. METHOTREXATE [Suspect]
     Active Substance: METHOTREXATE
  4. ACETAMINOPHEN [Suspect]
     Active Substance: ACETAMINOPHEN
     Indication: Product used for unknown indication
  5. SULFAMETHOXAZOLE\TRIMETHOPRIM [Suspect]
     Active Substance: SULFAMETHOXAZOLE\TRIMETHOPRIM
     Indication: Product used for unknown indication
  6. ACTEMRA [Suspect]
     Active Substance: TOCILIZUMAB
     Indication: Rheumatoid arthritis
     Dosage: 728 MG
     Route: 042
  7. CHLORHEXIDINE [Suspect]
     Active Substance: CHLORHEXIDINE
     Indication: Product used for unknown indication
  8. CIMZIA [Suspect]
     Active Substance: CERTOLIZUMAB PEGOL
     Indication: Product used for unknown indication
     Route: 058
  9. ENBREL [Suspect]
     Active Substance: ETANERCEPT
     Indication: Product used for unknown indication
     Route: 058
  10. ORENCIA [Suspect]
     Active Substance: ABATACEPT
     Indication: Rheumatoid arthritis
     Route: 042
  11. ORENCIA [Suspect]
     Active Substance: ABATACEPT
     Dosage: 125 MG, QW
  12. ORENCIA [Suspect]
     Active Substance: ABATACEPT
     Dosage: UNK
  13. OXYCODONE HYDROCHLORIDE [Suspect]
     Active Substance: OXYCODONE HYDROCHLORIDE
     Indication: Product used for unknown indication
  14. PERIOGARD [Suspect]
     Active Substance: CHLORHEXIDINE GLUCONATE
     Indication: Product used for unknown indication
     Dosage: UNK
  15. CETIRIZINE HYDROCHLORIDE [Suspect]
     Active Substance: CETIRIZINE HYDROCHLORIDE
  16. SIMPONI [Suspect]
     Active Substance: GOLIMUMAB
     Indication: Product used for unknown indication
     Route: 058
  17. OXYCODONE TEREPHTHALATE [Suspect]
     Active Substance: OXYCODONE TEREPHTHALATE
     Indication: Product used for unknown indication
  18. MARVELON [Suspect]
     Active Substance: DESOGESTREL\ETHINYL ESTRADIOL
  19. TYLENOL [Suspect]
     Active Substance: ACETAMINOPHEN
     Indication: Product used for unknown indication
  20. DESOGESTREL\ETHINYL ESTRADIOL [Concomitant]
     Active Substance: DESOGESTREL\ETHINYL ESTRADIOL
  21. PANTOPRAZOLE SODIUM [Concomitant]
     Active Substance: PANTOPRAZOLE SODIUM
  22. IBUPROFEN [Concomitant]
     Active Substance: IBUPROFEN
  23. ZOPICLONE [Concomitant]
     Active Substance: ZOPICLONE
  24. ACETAMINOPHEN [Suspect]
     Active Substance: ACETAMINOPHEN
  25. TOCILIZUMAB [Suspect]
     Active Substance: TOCILIZUMAB
  26. OXYCODONE [Suspect]
     Active Substance: OXYCODONE
  27. DESOGESTREL [Suspect]
     Active Substance: DESOGESTREL
  28. CETIRIZINE HYDROCHLORIDE [Suspect]
     Active Substance: CETIRIZINE HYDROCHLORIDE
  29. GOLIMUMAB [Suspect]
     Active Substance: GOLIMUMAB
  30. OXYCODONE HYDROCHLORIDE [Suspect]
     Active Substance: OXYCODONE HYDROCHLORIDE
  31. DESOGESTREL\ETHINYL ESTRADIOL [Concomitant]
     Active Substance: DESOGESTREL\ETHINYL ESTRADIOL
  32. CHLORHEXIDINE GLUCONATE [Suspect]
     Active Substance: CHLORHEXIDINE GLUCONATE

REACTIONS (29)
  - Muscle injury [Unknown]
  - Gastrointestinal disorder [Unknown]
  - Impaired healing [Unknown]
  - Folliculitis [Unknown]
  - Irritable bowel syndrome [Unknown]
  - Pyrexia [Unknown]
  - Sinusitis [Unknown]
  - Blister [Unknown]
  - Confusional state [Unknown]
  - Arthralgia [Unknown]
  - Swelling [Unknown]
  - Nasopharyngitis [Unknown]
  - Pain [Unknown]
  - Weight increased [Unknown]
  - Peripheral swelling [Unknown]
  - Sleep disorder [Unknown]
  - Joint swelling [Unknown]
  - Lower respiratory tract infection [Unknown]
  - Infection [Unknown]
  - Fatigue [Unknown]
  - Stomatitis [Unknown]
  - Dyspnoea [Unknown]
  - Pruritus [Unknown]
  - Rash [Unknown]
  - Hypersensitivity [Unknown]
  - Ill-defined disorder [Unknown]
  - Drug ineffective [Unknown]
  - Contraindicated product administered [Unknown]
  - Therapeutic product effect decreased [Unknown]
